FAERS Safety Report 8393852-4 (Version None)
Quarter: 2012Q2

REPORT INFORMATION
  Report Type: 
  Country: None (occurrence: None)
  Receive Date: 20120530
  Receipt Date: 20090913
  Transmission Date: 20120825
  Serious: No
  Sender: FDA-Public Use
  Company Number: US-PFIZER INC-2009152670

PATIENT
  Sex: Female
  Weight: 70.3 kg

DRUGS (2)
  1. CELEBREX [Suspect]
     Indication: SPONDYLITIS
     Dosage: 100 MG, 2X/DAY
     Dates: start: 20080101
  2. LYRICA [Suspect]
     Indication: FIBROMYALGIA
     Dosage: 75 MG, 2X/DAY
     Dates: start: 20080101

REACTIONS (3)
  - ABDOMINAL PAIN [None]
  - PAIN [None]
  - WEIGHT INCREASED [None]
